FAERS Safety Report 8257752-2 (Version None)
Quarter: 2012Q2

REPORT INFORMATION
  Report Type: 
  Country: None (occurrence: None)
  Receive Date: 20120404
  Receipt Date: 20120327
  Transmission Date: 20120825
  Serious: Yes (Hospitalization, Other)
  Sender: FDA-Public Use
  Company Number: US-BIOGENIDEC-2010BI007126

PATIENT
  Age: 47 Year
  Sex: Female

DRUGS (5)
  1. TORADOL [Concomitant]
     Indication: MIGRAINE
  2. TYSABRI [Suspect]
     Indication: MULTIPLE SCLEROSIS
     Route: 042
     Dates: start: 20070108
  3. REQUIP [Concomitant]
     Indication: RESTLESS LEGS SYNDROME
  4. PHENERGAN HCL [Concomitant]
     Indication: NAUSEA
  5. TOPAMAX [Concomitant]
     Indication: MIGRAINE

REACTIONS (4)
  - EPILEPSY [None]
  - CARDIOVASCULAR DISORDER [None]
  - HEART RATE DECREASED [None]
  - MULTIPLE SCLEROSIS RELAPSE [None]
